FAERS Safety Report 14854046 (Version 1)
Quarter: 2018Q2

REPORT INFORMATION
  Report Type: Report from Study
  Country: US (occurrence: US)
  Receive Date: 20180507
  Receipt Date: 20180507
  Transmission Date: 20180711
  Serious: Yes (Hospitalization, Other)
  Sender: FDA-Public Use
  Company Number: US-PFIZER INC-2018179702

PATIENT
  Age: 60 Year
  Sex: Male
  Weight: 141 kg

DRUGS (24)
  1. ASPIRIN /00002701/ [Concomitant]
     Active Substance: ASPIRIN
     Dosage: UNK
  2. MAG-OX [Concomitant]
     Active Substance: MAGNESIUM OXIDE
     Dosage: UNK
  3. TACROLIMUS. [Suspect]
     Active Substance: TACROLIMUS
     Dosage: (CAPSULE), 2 MG IN AM AND 2 MG IN PM
     Route: 048
  4. LEVEMIR [Concomitant]
     Active Substance: INSULIN DETEMIR
  5. COZAAR [Concomitant]
     Active Substance: LOSARTAN POTASSIUM
  6. VALCYTE [Concomitant]
     Active Substance: VALGANCICLOVIR HYDROCHLORIDE
     Dosage: UNK
     Dates: end: 20170825
  7. FLAGYL [Suspect]
     Active Substance: METRONIDAZOLE\METRONIDAZOLE HYDROCHLORIDE
     Indication: OSTEOMYELITIS
     Dosage: 500 MG, THRICE DAILY
     Route: 048
  8. TACROLIMUS. [Suspect]
     Active Substance: TACROLIMUS
     Dosage: (CAPSULE), 4 MG IN AM AND 3 MG IN PM
     Route: 048
  9. LASIX [Concomitant]
     Active Substance: FUROSEMIDE
     Dosage: UNK
  10. CHOLECALCIFEROL [Concomitant]
     Active Substance: CHOLECALCIFEROL
  11. PRAVACHOL [Concomitant]
     Active Substance: PRAVASTATIN SODIUM
  12. DELTASONE [Concomitant]
     Active Substance: PREDNISONE
  13. NOVOLOG [Concomitant]
     Active Substance: INSULIN ASPART
  14. ROXICODONE [Concomitant]
     Active Substance: OXYCODONE HYDROCHLORIDE
  15. TACROLIMUS. [Suspect]
     Active Substance: TACROLIMUS
     Dosage: (CAPSULE), 2 MG IN AM AND 3 MG IN PM
     Route: 048
  16. PROZAC [Concomitant]
     Active Substance: FLUOXETINE HYDROCHLORIDE
  17. TACROLIMUS. [Suspect]
     Active Substance: TACROLIMUS
     Dosage: 2 MG (CAPSULE), TWICE DAILY (AM AND PM)
     Route: 048
     Dates: start: 20170428
  18. NAFCILLIN [Suspect]
     Active Substance: NAFCILLIN\NAFCILLIN SODIUM
     Indication: OSTEOMYELITIS
     Dosage: 2 G, 3-6 TIMES DAILY
     Route: 042
  19. NORVASC [Concomitant]
     Active Substance: AMLODIPINE BESYLATE
  20. ALBUTEROL /00139501/ [Concomitant]
     Active Substance: ALBUTEROL
  21. COREG [Concomitant]
     Active Substance: CARVEDILOL
  22. BENADRYL [Concomitant]
     Active Substance: DIPHENHYDRAMINE HYDROCHLORIDE
  23. TACROLIMUS. [Suspect]
     Active Substance: TACROLIMUS
     Dosage: (CAPSULE), 2 MG IN AM AND 3 MG IN PM
     Route: 048
  24. FILGRASTIM [Concomitant]
     Active Substance: FILGRASTIM
     Dosage: UNK

REACTIONS (7)
  - Osteomyelitis [Recovered/Resolved with Sequelae]
  - Fluid overload [Recovered/Resolved]
  - Pyrexia [Recovered/Resolved]
  - Acute kidney injury [Recovered/Resolved]
  - Condition aggravated [Recovered/Resolved]
  - Condition aggravated [Recovered/Resolved with Sequelae]
  - Cellulitis [Recovered/Resolved with Sequelae]

NARRATIVE: CASE EVENT DATE: 20170915
